FAERS Safety Report 15350598 (Version 1)
Quarter: 2018Q3

REPORT INFORMATION
  Report Type: Spontaneous
  Country: US (occurrence: US)
  Receive Date: 20180905
  Receipt Date: 20180905
  Transmission Date: 20181010
  Serious: No
  Sender: FDA-Public Use
  Company Number: US-CELGENEUS-USA-20180810080

PATIENT
  Sex: Female

DRUGS (2)
  1. REVLIMID [Suspect]
     Active Substance: LENALIDOMIDE
     Indication: REFRACTORY ANAEMIA WITH AN EXCESS OF BLASTS
     Dosage: 15 MILLIGRAM
     Route: 048
     Dates: start: 201805
  2. REVLIMID [Suspect]
     Active Substance: LENALIDOMIDE
     Indication: OFF LABEL USE

REACTIONS (5)
  - Diarrhoea [Unknown]
  - Depression [Unknown]
  - Peripheral swelling [Unknown]
  - Alopecia [Unknown]
  - Fatigue [Unknown]

NARRATIVE: CASE EVENT DATE: 2018
